FAERS Safety Report 20393505 (Version 1)
Quarter: 2022Q1

REPORT INFORMATION
  Report Type: Spontaneous
  Country: ES (occurrence: ES)
  Receive Date: 20220128
  Receipt Date: 20220128
  Transmission Date: 20220423
  Serious: Yes (Other)
  Sender: FDA-Public Use
  Company Number: None

PATIENT
  Age: 42 Year
  Sex: Female
  Weight: 67 kg

DRUGS (2)
  1. VARENICLINE TARTRATE [Suspect]
     Active Substance: VARENICLINE TARTRATE
     Indication: Nicotine dependence
     Dosage: DOSAGE TEXT: ACCORDING TO DOSAGE DESCRIBED
     Route: 048
  2. VORTIOXETINE [Suspect]
     Active Substance: VORTIOXETINE
     Indication: Major depression
     Dates: start: 20200229, end: 20200331

REACTIONS (8)
  - Hyperhidrosis [Not Recovered/Not Resolved]
  - Anxiety [Not Recovered/Not Resolved]
  - Tinnitus [Unknown]
  - Headache [Not Recovered/Not Resolved]
  - Rabies [Not Recovered/Not Resolved]
  - Agitation [Not Recovered/Not Resolved]
  - Anger [Not Recovered/Not Resolved]
  - Disorientation [Not Recovered/Not Resolved]
